FAERS Safety Report 7328341 (Version 3)
Quarter: 2013Q4

REPORT INFORMATION
  Report Type: Spontaneous
  Country: US (occurrence: US)
  Receive Date: 20100323
  Receipt Date: 20131231
  Transmission Date: 20140711
  Serious: Yes (Hospitalization)
  Sender: FDA-Public Use
  Company Number: US-BAYER-201017006NA

PATIENT
  Age: 39 Year
  Sex: Female
  Weight: 56.69 kg

DRUGS (4)
  1. YAZ [Suspect]
     Indication: CONTRACEPTION
     Dosage: UNK
     Route: 048
     Dates: start: 200804, end: 200906
  2. WELLBUTRIN XL [Concomitant]
     Indication: SMOKING CESSATION THERAPY
     Dosage: 150 MG, UNK
     Dates: start: 20061222, end: 20080524
  3. BUPROPION [Concomitant]
     Dosage: 75 MG, UNK
     Dates: start: 20081117, end: 20091211
  4. CHANTIX [Concomitant]
     Dosage: 0.5 MG, UNK
     Route: 048

REACTIONS (2)
  - Deep vein thrombosis [Unknown]
  - Mental disorder [None]
